FAERS Safety Report 7511245-6 (Version None)
Quarter: 2011Q2

REPORT INFORMATION
  Report Type: 
  Country: None (occurrence: None)
  Receive Date: 20110531
  Receipt Date: 20110525
  Transmission Date: 20111010
  Serious: Yes (Death)
  Sender: FDA-Public Use
  Company Number: PHHY2011US45501

PATIENT
  Sex: Male
  Weight: 87.982 kg

DRUGS (1)
  1. EXJADE [Suspect]
     Indication: NEOPLASM MALIGNANT
     Dosage: 1500 MG, QD
     Route: 048
     Dates: start: 20080925

REACTIONS (1)
  - DEATH [None]
